FAERS Safety Report 7574287-0 (Version None)
Quarter: 2011Q2

REPORT INFORMATION
  Report Type: 
  Country: None (occurrence: None)
  Receive Date: 20110627
  Receipt Date: 20110616
  Transmission Date: 20111010
  Serious: Yes (Hospitalization)
  Sender: FDA-Public Use
  Company Number: CA-JNJFOC-20110400889

PATIENT
  Age: 86 Year
  Sex: Female
  Weight: 38.56 kg

DRUGS (10)
  1. ROBAXIN [Suspect]
     Indication: GROIN PAIN
     Route: 065
     Dates: start: 20100601
  2. TYLENOL W/ CODEINE NO. 3 [Suspect]
     Indication: PAIN IN EXTREMITY
     Route: 065
     Dates: start: 20100601
  3. TYLENOL W/ CODEINE NO. 3 [Suspect]
     Indication: GROIN PAIN
     Route: 065
     Dates: start: 20100601
  4. ASPIRIN [Concomitant]
     Route: 065
  5. ASPIRIN [Concomitant]
     Route: 065
  6. AGGRENOX [Concomitant]
     Route: 065
     Dates: start: 20100601
  7. SINEMET [Concomitant]
     Indication: PARKINSON'S DISEASE
     Route: 065
  8. RAMIPRIL [Concomitant]
     Route: 065
     Dates: start: 20100601
  9. ROBAXIN [Suspect]
     Indication: PAIN IN EXTREMITY
     Route: 065
     Dates: start: 20100601
  10. ARICEPT [Concomitant]
     Route: 048
     Dates: start: 20100629

REACTIONS (1)
  - DEMENTIA [None]
